FAERS Safety Report 23135324 (Version 3)
Quarter: 2024Q3

REPORT INFORMATION
  Report Type: Report from Study
  Country: IT (occurrence: IT)
  Receive Date: 20231101
  Receipt Date: 20240807
  Transmission Date: 20241017
  Serious: Yes (Other)
  Sender: ELI LILLY AND CO
  Company Number: IT-ELI_LILLY_AND_COMPANY-IT202310017094

PATIENT

DRUGS (2)
  1. ABEMACICLIB [Suspect]
     Active Substance: ABEMACICLIB
     Indication: Breast cancer metastatic
     Dosage: 150 MG, BID
     Route: 065
  2. ABEMACICLIB [Suspect]
     Active Substance: ABEMACICLIB
     Indication: Chest wall tumour
     Dosage: REDUCED TO 100 MG TWICE DAILY OR 50 MG TWICE DAILY WHEN CERTAIN TOXICITIES OCCURRED, UNKNOWN
     Route: 065

REACTIONS (1)
  - Skin toxicity [Unknown]
